FAERS Safety Report 8917868 (Version 2)
Quarter: 2012Q4

REPORT INFORMATION
  Report Type: 
  Country: US (occurrence: US)
  Receive Date: 20121120
  Receipt Date: 20121219
  Transmission Date: 20130627
  Serious: Yes (Death)
  Sender: FDA-Public Use
  Company Number: US-GILEAD-2012-0064825

PATIENT
  Sex: Male

DRUGS (13)
  1. LETAIRIS [Suspect]
     Indication: PULMONARY HYPERTENSION
     Route: 048
     Dates: start: 20110429, end: 20121102
  2. LETAIRIS [Suspect]
     Indication: IDIOPATHIC PULMONARY FIBROSIS
  3. LEVOTHYROXINE [Concomitant]
  4. PREDNISONE [Concomitant]
  5. ALBUTEROL                          /00139501/ [Concomitant]
  6. TORSEMIDE [Concomitant]
  7. LUMIGAN [Concomitant]
  8. AZOPT [Concomitant]
  9. LIPITOR [Concomitant]
  10. FLOMAX                             /00889901/ [Concomitant]
  11. SOTALOL [Concomitant]
  12. PEPCID                             /00706001/ [Concomitant]
  13. NORVASC [Concomitant]

REACTIONS (2)
  - Unevaluable event [Fatal]
  - Pulmonary hypertension [Fatal]
